FAERS Safety Report 7596421-9 (Version None)
Quarter: 2011Q3

REPORT INFORMATION
  Report Type: 
  Country: None (occurrence: None)
  Receive Date: 20110707
  Receipt Date: 20110630
  Transmission Date: 20111222
  Serious: Yes (Death)
  Sender: FDA-Public Use
  Company Number: US-GILEAD-2011-0037704

PATIENT
  Sex: Male
  Weight: 60.382 kg

DRUGS (5)
  1. CIALIS [Concomitant]
     Route: 048
     Dates: start: 20101007
  2. NORVIR [Concomitant]
     Indication: HIV INFECTION
     Route: 048
     Dates: start: 20100916
  3. TRUVADA [Suspect]
     Indication: HIV INFECTION
     Dates: start: 20070228, end: 20110313
  4. PREZISTA [Concomitant]
     Indication: HIV INFECTION
     Route: 048
     Dates: start: 20100916
  5. VICODIN [Suspect]
     Dates: start: 20050101

REACTIONS (1)
  - TOXICITY TO VARIOUS AGENTS [None]
